FAERS Safety Report 5080463-1 (Version None)
Quarter: 2006Q3

REPORT INFORMATION
  Report Type: 
  Country: None (occurrence: None)
  Receive Date: 20060809
  Receipt Date: 20060801
  Transmission Date: 20061208
  Serious: Yes (Hospitalization)
  Sender: FDA-Public Use
  Company Number: 200610936BYL

PATIENT
  Age: 57 Year
  Sex: Female

DRUGS (4)
  1. AVELOX [Suspect]
     Indication: PNEUMONIA
     Dosage: 400 MG, QD, ORAL
     Route: 048
     Dates: start: 20060731
  2. CLEANAL [Concomitant]
  3. BROCIN [Concomitant]
  4. CLARITHROMYCIN [Concomitant]

REACTIONS (4)
  - CHEST DISCOMFORT [None]
  - COLD SWEAT [None]
  - DIZZINESS [None]
  - MALAISE [None]
